FAERS Safety Report 26175987 (Version 1)
Quarter: 2025Q4

REPORT INFORMATION
  Report Type: Spontaneous
  Country: US (occurrence: US)
  Receive Date: 20251218
  Receipt Date: 20251218
  Transmission Date: 20260117
  Serious: Yes (Hospitalization)
  Sender: SECURA BIO
  Company Number: US-SECURA BIO, INC.-SECUR-2025-US002156

PATIENT
  Sex: Female

DRUGS (2)
  1. COPIKTRA [Suspect]
     Active Substance: DUVELISIB
     Indication: Non-Hodgkin^s lymphoma
     Dosage: 25 MILLIGRAM, BID
     Route: 061
     Dates: start: 202505
  2. COPIKTRA [Suspect]
     Active Substance: DUVELISIB
     Indication: Angioimmunoblastic T-cell lymphoma

REACTIONS (3)
  - Hypotension [Unknown]
  - Stomatitis [Unknown]
  - Product use in unapproved indication [Unknown]
